FAERS Safety Report 8495131 (Version 3)
Quarter: 2013Q3

REPORT INFORMATION
  Report Type: Spontaneous
  Country: US (occurrence: None)
  Receive Date: 20120330
  Receipt Date: 20130327
  Transmission Date: 20140515
  Serious: Yes (Other)
  Sender: FDA-Public Use
  Company Number: 2012-1305

PATIENT
  Age: 38 Year
  Sex: Female
  Weight: 78 kg

DRUGS (3)
  1. SOMATULINE DEPOT [Suspect]
     Indication: ACROMEGALY
     Dosage: 90 MG (90 MG,1 IN 28 D)
     Route: 030
     Dates: start: 20100626, end: 201112
  2. LEVOXYL [Concomitant]
  3. LO-OGESTEROL (EUGYNON /00022701/) [Concomitant]

REACTIONS (2)
  - Amenorrhoea [None]
  - Uterine leiomyoma [None]
